FAERS Safety Report 7204020 (Version 2)
Quarter: 2012Q4

REPORT INFORMATION
  Report Type: Report from Study
  Country: ES (occurrence: ES)
  Receive Date: 20091208
  Receipt Date: 20120920
  Transmission Date: 20130627
  Serious: Yes (Hospitalization, Other)
  Sender: FDA-Public Use
  Company Number: ES-JNJFOC-20090304991

PATIENT
  Age: 75 Year
  Sex: Male
  Weight: 65 kg

DRUGS (6)
  1. REMICADE [Suspect]
     Indication: RHEUMATOID ARTHRITIS
     Route: 042
     Dates: end: 20090707
  2. REMICADE [Suspect]
     Indication: RHEUMATOID ARTHRITIS
     Route: 042
     Dates: start: 20060110
  3. METHOTREXATE [Concomitant]
  4. OMEPRAZOLE [Concomitant]
  5. UNSPECIFIED ANTICOAGULANT [Concomitant]
  6. ACETAMINOPHEN [Concomitant]

REACTIONS (6)
  - Clear cell renal cell carcinoma [Recovered/Resolved with Sequelae]
  - Acute myocardial infarction [Unknown]
  - Gastrointestinal haemorrhage [Unknown]
  - Anaemia [Recovered/Resolved]
  - Rectal haemorrhage [Recovered/Resolved]
  - Myocardial infarction [Recovered/Resolved with Sequelae]
